FAERS Safety Report 8328088-6 (Version None)
Quarter: 2012Q2

REPORT INFORMATION
  Report Type: 
  Country: None (occurrence: None)
  Receive Date: 20120502
  Receipt Date: 20120423
  Transmission Date: 20120825
  Serious: Yes (Other)
  Sender: FDA-Public Use
  Company Number: PHHY2012JP027823

PATIENT
  Sex: Male

DRUGS (2)
  1. RIVASTIGMINE [Suspect]
     Indication: DEMENTIA ALZHEIMER'S TYPE
     Dosage: UNK
     Route: 062
     Dates: start: 20111101, end: 20120201
  2. SERMION [Concomitant]

REACTIONS (3)
  - APPLICATION SITE REACTION [None]
  - HEPATIC NEOPLASM [None]
  - HEPATIC FUNCTION ABNORMAL [None]
